FAERS Safety Report 17076925 (Version 1)
Quarter: 2019Q4

REPORT INFORMATION
  Report Type: Spontaneous
  Country: IT (occurrence: IT)
  Receive Date: 20191126
  Receipt Date: 20191126
  Transmission Date: 20200122
  Serious: Yes (Other)
  Sender: FDA-Public Use
  Company Number: IT-MYLANLABS-2019M1114479

PATIENT
  Age: 46 Year
  Sex: Male
  Weight: 93 kg

DRUGS (4)
  1. TREVICTA [Concomitant]
     Active Substance: PALIPERIDONE PALMITATE
     Dosage: UNK
  2. CLOZAPINE. [Suspect]
     Active Substance: CLOZAPINE
     Indication: SCHIZOAFFECTIVE DISORDER
     Dosage: 600 MILLIGRAM, QD
  3. HALOPERIDOL. [Concomitant]
     Active Substance: HALOPERIDOL
     Dosage: 15 MILLIGRAM, QD
  4. CARBOLITHIUM [Concomitant]
     Active Substance: LITHIUM CARBONATE
     Dosage: 1200 MILLIGRAM, QD

REACTIONS (2)
  - Epilepsy [Not Recovered/Not Resolved]
  - Fall [Not Recovered/Not Resolved]

NARRATIVE: CASE EVENT DATE: 20190909
